FAERS Safety Report 25235567 (Version 1)
Quarter: 2025Q2

REPORT INFORMATION
  Report Type: Spontaneous
  Country: US (occurrence: US)
  Receive Date: 20250424
  Receipt Date: 20250424
  Transmission Date: 20250717
  Serious: No
  Sender: DR REDDYS
  Company Number: US-DRL-USA-USA/2025/04/005811

PATIENT
  Age: 32 Year
  Sex: Male

DRUGS (2)
  1. BUDESONIDE [Suspect]
     Active Substance: BUDESONIDE
     Indication: Eosinophilic oesophagitis
     Dosage: BUDESONIDE 2 MG DAILY
  2. FLUTICASONE [Concomitant]
     Active Substance: FLUTICASONE
     Indication: Eosinophilic oesophagitis

REACTIONS (1)
  - Drug ineffective for unapproved indication [Unknown]
